FAERS Safety Report 20574382 (Version 2)
Quarter: 2022Q2

REPORT INFORMATION
  Report Type: Spontaneous
  Country: US (occurrence: US)
  Receive Date: 20220309
  Receipt Date: 20220502
  Transmission Date: 20220721
  Serious: No
  Sender: FDA-Public Use
  Company Number: US-INCYTE CORPORATION-2022IN002101

PATIENT

DRUGS (4)
  1. JAKAFI [Suspect]
     Active Substance: RUXOLITINIB
     Indication: Peripheral T-cell lymphoma unspecified
     Dosage: 10 MILLIGRAM, BID
     Route: 048
     Dates: start: 202011
  2. JAKAFI [Suspect]
     Active Substance: RUXOLITINIB
     Indication: Mycobacterial infection
     Dosage: 10 MILLIGRAM, BID
     Route: 048
     Dates: start: 20201118
  3. JAKAFI [Suspect]
     Active Substance: RUXOLITINIB
     Dosage: 10 MILLIGRAM, BID
     Route: 048
     Dates: start: 202104
  4. NUZYRA [Concomitant]
     Active Substance: OMADACYCLINE
     Indication: Product used for unknown indication
     Route: 065

REACTIONS (1)
  - Off label use [Unknown]

NARRATIVE: CASE EVENT DATE: 20201101
